FAERS Safety Report 5966171-0 (Version None)
Quarter: 2008Q4

REPORT INFORMATION
  Report Type: 
  Country: None (occurrence: None)
  Receive Date: 20081125
  Receipt Date: 20081114
  Transmission Date: 20090506
  Serious: Yes (Other)
  Sender: FDA-Public Use
  Company Number: FR-ROCHE-597426

PATIENT
  Age: 30 Year
  Sex: Female

DRUGS (1)
  1. VALIUM [Suspect]
     Indication: ANXIETY
     Dosage: DOSAGE REGIMEN: 1/2 AMPOUL.
     Route: 030
     Dates: start: 20071101

REACTIONS (1)
  - SOFT TISSUE NECROSIS [None]
